FAERS Safety Report 5054116-X (Version None)
Quarter: 2006Q3

REPORT INFORMATION
  Report Type: 
  Country: None (occurrence: None)
  Receive Date: 20060718
  Receipt Date: 20060706
  Transmission Date: 20061208
  Serious: Yes (Death)
  Sender: FDA-Public Use
  Company Number: GB-NOVOPROD-254675

PATIENT
  Sex: Female
  Weight: 60 kg

DRUGS (1)
  1. MIXTARD HUMAN 70/30 [Suspect]
     Indication: DIABETES MELLITUS
     Dosage: 60 U, BID

REACTIONS (5)
  - BRAIN HERNIATION [None]
  - BRAIN OEDEMA [None]
  - CONVULSION [None]
  - HYPOGLYCAEMIA [None]
  - OVERDOSE [None]
